FAERS Safety Report 19582541 (Version 2)
Quarter: 2021Q3

REPORT INFORMATION
  Report Type: Report from Study
  Country: CN (occurrence: CN)
  Receive Date: 20210720
  Receipt Date: 20210728
  Transmission Date: 20211014
  Serious: Yes (Death, Hospitalization)
  Sender: FDA-Public Use
  Company Number: CN-ROCHE-2818364

PATIENT
  Age: 58 Year
  Sex: Male
  Weight: 55 kg

DRUGS (100)
  1. GLUCOSE [Concomitant]
     Active Substance: DEXTROSE
     Route: 042
     Dates: start: 20210408, end: 20210413
  2. POTASSIUM CHLORIDE. [Concomitant]
     Active Substance: POTASSIUM CHLORIDE
     Route: 042
     Dates: start: 20210330, end: 20210406
  3. SODIUM CHLORIDE. [Concomitant]
     Active Substance: SODIUM CHLORIDE
     Route: 042
     Dates: start: 20210415, end: 20210421
  4. FEBUXOSTAT. [Concomitant]
     Active Substance: FEBUXOSTAT
     Dates: start: 20210328, end: 20210329
  5. MOSAPRIDE CITRATE [Concomitant]
     Active Substance: MOSAPRIDE CITRATE
     Dates: start: 20210308, end: 20210322
  6. DIPHENHYDRAMINE. [Concomitant]
     Active Substance: DIPHENHYDRAMINE
     Dates: start: 20210308, end: 20210308
  7. DIPHENHYDRAMINE. [Concomitant]
     Active Substance: DIPHENHYDRAMINE
     Dates: start: 20210409, end: 20210409
  8. LANSOPRAZOLE. [Concomitant]
     Active Substance: LANSOPRAZOLE
     Dates: start: 20210308, end: 20210308
  9. CIMETIDINE [Concomitant]
     Active Substance: CIMETIDINE
     Dates: start: 20210308, end: 20210308
  10. DEXAMETHASONE SODIUM PHOSPHATE. [Concomitant]
     Active Substance: DEXAMETHASONE SODIUM PHOSPHATE
     Route: 042
     Dates: start: 20210308, end: 20210308
  11. TRAMADOL HYDROCHLORIDE. [Concomitant]
     Active Substance: TRAMADOL HYDROCHLORIDE
     Dates: start: 20210330, end: 20210330
  12. ZOLEDRONIC ACID [Concomitant]
     Active Substance: ZOLEDRONIC ACID
     Route: 042
     Dates: start: 20210330, end: 20210330
  13. RED BLOOD CELLS [Concomitant]
     Active Substance: HUMAN RED BLOOD CELL
     Indication: ANAEMIA
     Route: 042
     Dates: start: 20210407, end: 20210407
  14. PEGYLATED RECOMBINANT HUMAN GRANULOCYTE COLONY?STIMULATING FACTOR [Concomitant]
     Indication: NEUTROPHIL COUNT DECREASED
  15. PLACEBO [Suspect]
     Active Substance: UNSPECIFIED INGREDIENT
     Indication: OESOPHAGEAL SQUAMOUS CELL CARCINOMA METASTATIC
     Dosage: ON 08/MAR/2021, HE RECEIVED MOST RECENT DOSE OF ATEZOLIZUMAB PRIOR TO SAE.
     Route: 042
     Dates: start: 20201229
  16. MEDIUM AND LONG CHAIN FAT EMULSION INJECTION (C6?24) [Concomitant]
     Active Substance: GLYCERIN\LECITHIN\MEDIUM-CHAIN TRIGLYCERIDES\SOYBEAN OIL
     Indication: NUTRITIONAL SUPPLEMENTATION
     Dates: start: 20210607, end: 20210608
  17. POLYENE PHOSPHATIDYLCHOLINE [Concomitant]
     Active Substance: PHOSPHOLIPID
     Route: 048
     Dates: start: 20210124, end: 20210312
  18. GLUCOSE [Concomitant]
     Active Substance: DEXTROSE
     Dates: start: 20210307, end: 20210311
  19. POTASSIUM CHLORIDE. [Concomitant]
     Active Substance: POTASSIUM CHLORIDE
     Dates: start: 20210317, end: 20210317
  20. SODIUM CHLORIDE. [Concomitant]
     Active Substance: SODIUM CHLORIDE
     Route: 042
     Dates: start: 20210330, end: 20210406
  21. LINACLOTIDE [Concomitant]
     Active Substance: LINACLOTIDE
     Indication: CONSTIPATION
     Dates: start: 20210303, end: 20210311
  22. MOSAPRIDE CITRATE [Concomitant]
     Active Substance: MOSAPRIDE CITRATE
     Dates: start: 20210409, end: 20210610
  23. MONTMORILLONITE [Concomitant]
     Active Substance: MONTMORILLONITE
     Indication: DIARRHOEA
     Dates: start: 20210310, end: 20210310
  24. MONTMORILLONITE [Concomitant]
     Active Substance: MONTMORILLONITE
     Dates: start: 20210401, end: 20210403
  25. INSULIN [Concomitant]
     Active Substance: INSULIN NOS
     Route: 042
     Dates: start: 20210408, end: 20210413
  26. FENTANYL. [Concomitant]
     Active Substance: FENTANYL
     Dates: start: 20210331, end: 20210406
  27. PEGYLATED RECOMBINANT HUMAN GRANULOCYTE COLONY?STIMULATING FACTOR [Concomitant]
     Indication: LEUKOPENIA
     Route: 058
     Dates: start: 20210415, end: 20210415
  28. ILAPRAZOLE [Concomitant]
     Active Substance: ILAPRAZOLE
     Dates: start: 20210422, end: 20210423
  29. ALBUMIN PREPARED FROM HUMAN PLASMA [Concomitant]
     Indication: HYPOPROTEINAEMIA
     Dates: start: 20210317, end: 20210317
  30. GLUCOSE [Concomitant]
     Active Substance: DEXTROSE
     Route: 042
     Dates: start: 20210329, end: 20210406
  31. FUROSEMIDE. [Concomitant]
     Active Substance: FUROSEMIDE
     Dates: start: 20210409, end: 20210413
  32. HEPARIN SODIUM. [Concomitant]
     Active Substance: HEPARIN SODIUM
     Dates: start: 20210303, end: 20210311
  33. GLUTATHIONE [Concomitant]
     Active Substance: GLUTATHIONE
     Dates: start: 20210329, end: 20210422
  34. RECOMBINANT HUMAN ERYTHROPOIETIN [Concomitant]
     Active Substance: ERYTHROPOIETIN
     Route: 058
     Dates: start: 20210406, end: 20210422
  35. RIVAROXABAN [Concomitant]
     Active Substance: RIVAROXABAN
     Dates: start: 20210407, end: 20210615
  36. METOCLOPRAMIDE. [Concomitant]
     Active Substance: METOCLOPRAMIDE
     Dates: start: 20210410, end: 20210410
  37. PANTOPRAZOLE SODIUM. [Concomitant]
     Active Substance: PANTOPRAZOLE SODIUM
     Dates: start: 20210604, end: 20210604
  38. SODIUM BICARBONATE. [Concomitant]
     Active Substance: SODIUM BICARBONATE
     Dates: start: 20210330, end: 20210503
  39. LACTULOSE. [Concomitant]
     Active Substance: LACTULOSE
     Indication: CONSTIPATION
     Dates: start: 20210212, end: 20210329
  40. POLYENE PHOSPHATIDYLCHOLINE [Concomitant]
     Active Substance: PHOSPHOLIPID
     Route: 042
     Dates: start: 20210301, end: 20210311
  41. POTASSIUM CHLORIDE. [Concomitant]
     Active Substance: POTASSIUM CHLORIDE
     Route: 042
     Dates: start: 20210415, end: 20210421
  42. SODIUM CHLORIDE. [Concomitant]
     Active Substance: SODIUM CHLORIDE
     Dates: start: 20210307, end: 20210310
  43. FUROSEMIDE. [Concomitant]
     Active Substance: FUROSEMIDE
     Route: 042
     Dates: start: 20210317, end: 20210317
  44. MOSAPRIDE CITRATE [Concomitant]
     Active Substance: MOSAPRIDE CITRATE
     Dates: start: 20210407, end: 20210615
  45. TROPISETRON [Concomitant]
     Active Substance: TROPISETRON
     Dates: start: 20210401, end: 20210414
  46. LANSOPRAZOLE. [Concomitant]
     Active Substance: LANSOPRAZOLE
     Dates: start: 20210331, end: 20210422
  47. SHENG XUE BAO [Concomitant]
     Indication: ANAEMIA
     Dosage: FORM: LIQUID
     Route: 048
     Dates: start: 20210406, end: 20210503
  48. SODIUM BICARBONATE. [Concomitant]
     Active Substance: SODIUM BICARBONATE
     Route: 048
     Dates: start: 20210607, end: 20210607
  49. GLUCOSE [Concomitant]
     Active Substance: DEXTROSE
     Route: 042
     Dates: start: 20210415, end: 20210421
  50. POTASSIUM CHLORIDE. [Concomitant]
     Active Substance: POTASSIUM CHLORIDE
     Indication: POLYURIA
     Dates: start: 20210301, end: 20210305
  51. FUROSEMIDE. [Concomitant]
     Active Substance: FUROSEMIDE
     Indication: BLOOD CALCIUM INCREASED
     Route: 042
     Dates: start: 20210329, end: 20210331
  52. FUROSEMIDE. [Concomitant]
     Active Substance: FUROSEMIDE
     Dates: start: 20210406, end: 20210407
  53. FEBUXOSTAT. [Concomitant]
     Active Substance: FEBUXOSTAT
     Indication: HYPERURICAEMIA
     Dates: start: 20210305, end: 20210324
  54. INSULIN [Concomitant]
     Active Substance: INSULIN NOS
     Route: 042
     Dates: start: 20210415, end: 20210421
  55. CIMETIDINE [Concomitant]
     Active Substance: CIMETIDINE
     Dates: start: 20210409, end: 20210409
  56. RECOMBINANT HUMAN GRANULOCYTE COLONY STIMULATING FACTOR [Concomitant]
     Active Substance: GRANULOCYTE COLONY-STIMULATING FACTOR NOS
     Dosage: 300 UG
     Route: 058
     Dates: start: 20210418, end: 20210419
  57. PLACEBO [Suspect]
     Active Substance: UNSPECIFIED INGREDIENT
     Indication: OESOPHAGEAL SQUAMOUS CELL CARCINOMA METASTATIC
     Dosage: ON 08/MAR/2021, HE RECEIVED MOST RECENT DOSE OF STUDY DRUG PRIOR TO SAE.
     Route: 042
     Dates: start: 20201229
  58. DIAMMONIUM GLYCYRRHIZINATE [Concomitant]
     Active Substance: HERBALS\DIAMMONIUM GLYCYRRHIZINATE
     Route: 042
     Dates: start: 20210329, end: 20210422
  59. POLYENE PHOSPHATIDYLCHOLINE [Concomitant]
     Active Substance: PHOSPHOLIPID
     Route: 048
     Dates: start: 20210316, end: 20210317
  60. POTASSIUM CHLORIDE. [Concomitant]
     Active Substance: POTASSIUM CHLORIDE
     Dates: start: 20210307, end: 20210311
  61. POTASSIUM CHLORIDE. [Concomitant]
     Active Substance: POTASSIUM CHLORIDE
     Route: 042
     Dates: start: 20210408, end: 20210413
  62. SODIUM CHLORIDE. [Concomitant]
     Active Substance: SODIUM CHLORIDE
     Route: 042
     Dates: start: 20210408, end: 20210413
  63. FUROSEMIDE. [Concomitant]
     Active Substance: FUROSEMIDE
     Indication: POLYURIA
     Route: 042
     Dates: start: 20210301, end: 20210305
  64. FUROSEMIDE. [Concomitant]
     Active Substance: FUROSEMIDE
     Dates: start: 20210419, end: 20210421
  65. HEPARIN SODIUM. [Concomitant]
     Active Substance: HEPARIN SODIUM
     Dates: start: 20210401, end: 20210422
  66. TROPISETRON [Concomitant]
     Active Substance: TROPISETRON
     Dates: start: 20210308, end: 20210308
  67. RECOMBINANT HUMAN ERYTHROPOIETIN [Concomitant]
     Active Substance: ERYTHROPOIETIN
     Indication: ANAEMIA
     Route: 058
     Dates: start: 20210320, end: 20210320
  68. RECOMBINANT HUMAN ERYTHROPOIETIN [Concomitant]
     Active Substance: ERYTHROPOIETIN
     Dates: start: 20210415, end: 20210415
  69. CALCIUM GLUCONATE. [Concomitant]
     Active Substance: CALCIUM GLUCONATE
     Route: 042
     Dates: start: 20210406, end: 20210406
  70. LOPERAMIDE HYDROCHLORIDE. [Concomitant]
     Active Substance: LOPERAMIDE HYDROCHLORIDE
     Dates: start: 20210412, end: 20210418
  71. RECOMBINANT HUMAN GRANULOCYTE COLONY STIMULATING FACTOR [Concomitant]
     Active Substance: GRANULOCYTE COLONY-STIMULATING FACTOR NOS
     Indication: NEUTROPHIL COUNT DECREASED
     Dosage: 300 UG
     Route: 058
     Dates: start: 20210415, end: 20210415
  72. BACLOFEN. [Concomitant]
     Active Substance: BACLOFEN
     Indication: HICCUPS
     Dates: start: 20210410, end: 20210410
  73. PANTOPRAZOLE SODIUM. [Concomitant]
     Active Substance: PANTOPRAZOLE SODIUM
     Dates: start: 20210606, end: 20210606
  74. PACLITAXEL. [Suspect]
     Active Substance: PACLITAXEL
     Indication: OESOPHAGEAL SQUAMOUS CELL CARCINOMA METASTATIC
     Dosage: ON 08/MAR/2021, HE RECEIVED MOST RECENT DOSE OF PACLITAXEL (275 MG) PRIOR TO SAE.
     Route: 042
     Dates: start: 20201229
  75. ZOLPIDEM TARTRATE. [Concomitant]
     Active Substance: ZOLPIDEM TARTRATE
     Indication: INSOMNIA
     Dates: start: 20210119, end: 20210520
  76. POLYENE PHOSPHATIDYLCHOLINE [Concomitant]
     Active Substance: PHOSPHOLIPID
     Dates: start: 20210316, end: 20210317
  77. SODIUM BICARBONATE. [Concomitant]
     Active Substance: SODIUM BICARBONATE
     Dates: start: 20210409, end: 20210409
  78. GLUCOSE [Concomitant]
     Active Substance: DEXTROSE
     Dates: start: 20210301, end: 20210305
  79. GLUCOSE [Concomitant]
     Active Substance: DEXTROSE
     Route: 042
     Dates: start: 20210415, end: 20210421
  80. POLYENE PHOSPHATIDYLCHOLINE [Concomitant]
     Active Substance: PHOSPHOLIPID
     Route: 042
     Dates: start: 20210329, end: 20210422
  81. MOSAPRIDE CITRATE [Concomitant]
     Active Substance: MOSAPRIDE CITRATE
     Dates: start: 20210331, end: 20210407
  82. DIPHENHYDRAMINE. [Concomitant]
     Active Substance: DIPHENHYDRAMINE
     Dates: start: 20210308, end: 20210308
  83. INSULIN [Concomitant]
     Active Substance: INSULIN NOS
     Indication: NUTRITIONAL SUPPLEMENTATION
     Route: 042
     Dates: start: 20210329, end: 20210406
  84. RECOMBINANT HUMAN ERYTHROPOIETIN [Concomitant]
     Active Substance: ERYTHROPOIETIN
     Dates: start: 20210418, end: 20210419
  85. PROMETHAZINE [Concomitant]
     Active Substance: PROMETHAZINE HYDROCHLORIDE
     Dates: start: 20210407, end: 20210407
  86. RECOMBINANT HUMAN GRANULOCYTE COLONY STIMULATING FACTOR [Concomitant]
     Active Substance: GRANULOCYTE COLONY-STIMULATING FACTOR NOS
     Indication: LEUKOPENIA
     Dosage: 300 UG
     Route: 058
     Dates: start: 20210320, end: 20210320
  87. CISPLATIN. [Suspect]
     Active Substance: CISPLATIN
     Indication: OESOPHAGEAL SQUAMOUS CELL CARCINOMA METASTATIC
     Dosage: ON 08/MAR/2021, HE RECEIVED MOST RECENT DOSE OF CISPLATIN (95 MG) PRIOR TO SAE.
     Route: 042
     Dates: start: 20201229
  88. SODIUM BICARBONATE. [Concomitant]
     Active Substance: SODIUM BICARBONATE
     Indication: HYPERURICAEMIA
     Dates: start: 20210207, end: 20210322
  89. GLUCOSE [Concomitant]
     Active Substance: DEXTROSE
     Route: 042
     Dates: start: 20210413, end: 20210413
  90. DIAMMONIUM GLYCYRRHIZINATE [Concomitant]
     Active Substance: HERBALS\DIAMMONIUM GLYCYRRHIZINATE
     Route: 042
     Dates: start: 20210301, end: 20210311
  91. SODIUM CHLORIDE. [Concomitant]
     Active Substance: SODIUM CHLORIDE
     Dates: start: 20210301, end: 20210301
  92. FUROSEMIDE. [Concomitant]
     Active Substance: FUROSEMIDE
     Indication: HYPERCALCAEMIA
     Route: 042
     Dates: start: 20210307, end: 20210310
  93. FUROSEMIDE. [Concomitant]
     Active Substance: FUROSEMIDE
     Dates: start: 20210402, end: 20210403
  94. MAGNESIUM SULFATE. [Concomitant]
     Active Substance: MAGNESIUM SULFATE
     Indication: CONSTIPATION
     Route: 042
     Dates: start: 20210302, end: 20210302
  95. DEXAMETHASONE SODIUM PHOSPHATE. [Concomitant]
     Active Substance: DEXAMETHASONE SODIUM PHOSPHATE
     Route: 042
     Dates: start: 20210409, end: 20210409
  96. MONTMORILLONITE [Concomitant]
     Active Substance: MONTMORILLONITE
     Dates: start: 20210406, end: 20210407
  97. OMEPRAZOLE. [Concomitant]
     Active Substance: OMEPRAZOLE
     Dates: start: 20210311, end: 20210324
  98. SHENG XUE BAO [Concomitant]
     Dates: start: 20210508, end: 20210610
  99. RECOMBINANT HUMAN GRANULOCYTE COLONY STIMULATING FACTOR [Concomitant]
     Active Substance: GRANULOCYTE COLONY-STIMULATING FACTOR NOS
     Route: 058
     Dates: start: 20210416, end: 20210416
  100. RECOMBINANT HUMAN GRANULOCYTE COLONY STIMULATING FACTOR [Concomitant]
     Active Substance: GRANULOCYTE COLONY-STIMULATING FACTOR NOS
     Route: 058
     Dates: start: 20210419, end: 20210419

REACTIONS (1)
  - Malnutrition [Recovered/Resolved]

NARRATIVE: CASE EVENT DATE: 20210329
